FAERS Safety Report 23723142 (Version 1)
Quarter: 2024Q2

REPORT INFORMATION
  Report Type: Spontaneous
  Country: US (occurrence: US)
  Receive Date: 20240409
  Receipt Date: 20240409
  Transmission Date: 20240716
  Serious: No
  Sender: FDA-Public Use
  Company Number: US-MYLANLABS-2024M1027465

PATIENT
  Sex: Female

DRUGS (1)
  1. ESTRADIOL TRANSDERMAL SYSTEM [Suspect]
     Active Substance: ESTRADIOL
     Indication: Blood oestrogen decreased
     Dosage: 0.075 MILLIGRAM, QD(TWICE WEEKLY)
     Route: 062

REACTIONS (2)
  - Product adhesion issue [Unknown]
  - Incorrect dose administered by device [Unknown]
